FAERS Safety Report 5830707-0 (Version None)
Quarter: 2008Q3

REPORT INFORMATION
  Report Type: 
  Country: None (occurrence: None)
  Receive Date: 20080801
  Receipt Date: 20071017
  Transmission Date: 20090109
  Serious: No
  Sender: FDA-Public Use
  Company Number: US-BRISTOL-MYERS SQUIBB COMPANY-13945548

PATIENT
  Age: 72 Year
  Sex: Female
  Weight: 94 kg

DRUGS (2)
  1. COUMADIN [Suspect]
     Indication: ATRIAL FIBRILLATION
     Dosage: 2MG ON SUNDAY/MONDAY, 1MG TUESDAY THRU SATURDAY. 1 MONTH AGO DOSE WAS REDUCED TO 1MG EVERYDAY.
  2. TOPROL-XL [Concomitant]
     Route: 048

REACTIONS (5)
  - ERYTHEMA [None]
  - HYPOAESTHESIA [None]
  - LYMPHADENOPATHY [None]
  - OEDEMA PERIPHERAL [None]
  - RASH [None]
